FAERS Safety Report 5990444-9 (Version None)
Quarter: 2008Q4

REPORT INFORMATION
  Report Type: 
  Country: None (occurrence: None)
  Receive Date: 20081211
  Receipt Date: 20081201
  Transmission Date: 20090506
  Serious: Yes (Hospitalization)
  Sender: FDA-Public Use
  Company Number: US-PFIZER INC-2008101198

PATIENT
  Sex: Female

DRUGS (6)
  1. PREDNISONE [Suspect]
  2. KETOPROFEN [Suspect]
  3. ETANERCEPT [Suspect]
     Indication: RHEUMATOID ARTHRITIS
     Dosage: 2 EVERY 1 WEEKS
     Route: 058
     Dates: start: 19990319, end: 20080701
  4. ESTRADIOL AND ESTRADIOL CIPIONATE [Suspect]
  5. ROSUVASTATIN CALCIUM [Suspect]
  6. SELENIUM [Suspect]

REACTIONS (1)
  - BREAST CANCER IN SITU [None]
